FAERS Safety Report 7811041-6 (Version None)
Quarter: 2011Q4

REPORT INFORMATION
  Report Type: 
  Country: None (occurrence: None)
  Receive Date: 20111013
  Receipt Date: 20111003
  Transmission Date: 20120403
  Serious: Yes (Hospitalization)
  Sender: FDA-Public Use
  Company Number: US-BAYER-2011-000114

PATIENT
  Age: 41 Year
  Sex: Female
  Weight: 56.689 kg

DRUGS (6)
  1. ASACOL [Concomitant]
     Indication: COLITIS
     Dosage: UNK
     Dates: start: 20081201
  2. FLUOXETINE [Concomitant]
  3. YAZ [Suspect]
     Indication: CONTRACEPTION
     Dosage: UNK
     Dates: start: 20070701, end: 20081201
  4. PREDNISONE [Concomitant]
     Indication: COLITIS
     Dosage: UNK
     Dates: start: 20081101
  5. YAZ [Suspect]
     Indication: ACNE
  6. LISINOPRIL [Concomitant]

REACTIONS (3)
  - DEEP VEIN THROMBOSIS [None]
  - PAIN [None]
  - MUSCLE SPASMS [None]
